FAERS Safety Report 8466615 (Version 2)
Quarter: 2012Q4

REPORT INFORMATION
  Report Type: 
  Country: CO (occurrence: CO)
  Receive Date: 20120319
  Receipt Date: 20121113
  Transmission Date: 20130627
  Serious: Yes (Other)
  Sender: FDA-Public Use
  Company Number: CO-ABBOTT-12P-036-0916352-00

PATIENT
  Age: 32 Year
  Sex: Female

DRUGS (9)
  1. VALPROATE SODIUM [Suspect]
     Indication: CONVULSION
     Dosage: 1500 mg daily
  2. PHENOBARBITAL [Interacting]
     Indication: EPILEPSY
     Dosage: 1 gram daily
  3. TOPIRAMATE [Interacting]
     Indication: EPILEPSY
  4. TOPIRAMATE [Interacting]
  5. TOPIRAMATE [Interacting]
  6. CARBAMAZEPINE [Concomitant]
     Indication: EPILEPSY
  7. LEVETIRACETAM [Concomitant]
     Indication: EPILEPSY
  8. GABAPENTIN [Concomitant]
     Indication: EPILEPSY
  9. MIDAZOLAM [Concomitant]
     Indication: EPILEPSY

REACTIONS (2)
  - Hyperammonaemic encephalopathy [Recovered/Resolved]
  - Drug interaction [Recovered/Resolved]
